FAERS Safety Report 9752018 (Version 1)
Quarter: 2013Q4

REPORT INFORMATION
  Report Type: Spontaneous
  Country: CH (occurrence: None)
  Receive Date: 20131211
  Receipt Date: 20131211
  Transmission Date: 20140711
  Serious: Yes (Hospitalization, Other)
  Sender: FDA-Public Use
  Company Number: DSM-2013-01159

PATIENT
  Age: 38 Year
  Sex: Female
  Weight: 75 kg

DRUGS (1)
  1. VASCORD (OLMESARTAN MEDOXOMIL, AMLODIPINE BESILATE) [Suspect]

REACTIONS (2)
  - Oligohydramnios [None]
  - Maternal exposure during pregnancy [None]
